FAERS Safety Report 13040490 (Version 1)
Quarter: 2016Q4

REPORT INFORMATION
  Report Type: Spontaneous
  Country: RO (occurrence: RO)
  Receive Date: 20161219
  Receipt Date: 20161219
  Transmission Date: 20170207
  Serious: Yes (Life-Threatening, Other)
  Sender: FDA-Public Use
  Company Number: RO-PFIZER INC-2016581902

PATIENT
  Age: 50 Year
  Sex: Female

DRUGS (1)
  1. LYRICA [Suspect]
     Active Substance: PREGABALIN
     Indication: SPINAL DEFORMITY
     Dosage: 100 MG (2 CAPSULES/DAY)

REACTIONS (1)
  - Dizziness [Unknown]
